FAERS Safety Report 9115632 (Version 1)
Quarter: 2013Q1

REPORT INFORMATION
  Report Type: Spontaneous
  Country: US (occurrence: US)
  Receive Date: 20130225
  Receipt Date: 20130225
  Transmission Date: 20140127
  Serious: Yes (Other)
  Sender: FDA-Public Use
  Company Number: US-ASTRAZENECA-2013SE11219

PATIENT
  Sex: Female

DRUGS (1)
  1. SYMBICORT [Suspect]
     Dosage: 160/4.5 MCG, 2 PUFS, TWO TIMES A DAY.
     Route: 055

REACTIONS (3)
  - Upper limb fracture [Unknown]
  - Fall [Unknown]
  - Limb discomfort [Unknown]
